FAERS Safety Report 9373633 (Version 2)
Quarter: 2013Q2

REPORT INFORMATION
  Report Type: Report from Study
  Country: CA (occurrence: CA)
  Receive Date: 20130627
  Receipt Date: 20130627
  Transmission Date: 20140414
  Serious: Yes (Other)
  Sender: FDA-Public Use
  Company Number: CA-ABBOTT-13P-028-1056333-00

PATIENT
  Age: 45 Year
  Sex: Male
  Weight: 70 kg

DRUGS (3)
  1. HUMIRA [Suspect]
     Indication: PSORIASIS
     Route: 058
     Dates: start: 20120810, end: 2013
  2. HUMIRA [Suspect]
     Dates: start: 20130426
  3. UNSPECIFIED INGREDIENTS [Suspect]

REACTIONS (11)
  - Tooth disorder [Unknown]
  - Tooth abscess [Recovered/Resolved]
  - Tooth extraction [Recovered/Resolved]
  - Fall [Not Recovered/Not Resolved]
  - Bone pain [Not Recovered/Not Resolved]
  - Diarrhoea [Recovered/Resolved]
  - Hypoaesthesia [Not Recovered/Not Resolved]
  - Tooth deposit [Unknown]
  - Dental caries [Unknown]
  - Gingivitis [Unknown]
  - Tobacco user [Unknown]
